FAERS Safety Report 10173426 (Version 1)
Quarter: 2014Q2

REPORT INFORMATION
  Report Type: Spontaneous
  Country: US (occurrence: None)
  Receive Date: 20140514
  Receipt Date: 20140514
  Transmission Date: 20141212
  Serious: Yes (Hospitalization)
  Sender: FDA-Public Use
  Company Number: None

PATIENT
  Age: 34 Year
  Sex: Male
  Weight: 118 kg

DRUGS (14)
  1. AMLODIPINE [Suspect]
  2. TACROLIMUS [Concomitant]
  3. PREDNISONE [Concomitant]
  4. BUDESONIDE [Concomitant]
  5. VALTREX [Concomitant]
  6. LEVAQUIN [Concomitant]
  7. DAPSONE [Concomitant]
  8. CASPOFUNGIN [Concomitant]
  9. URSODIOL [Concomitant]
  10. LEVEMIR INSULIN WITH LISPRO INSULIN SLIDING SCALE [Concomitant]
  11. METFORMIN [Concomitant]
  12. OXYCONTIN [Concomitant]
  13. PANTOPRAZOLE [Concomitant]
  14. WELLBUTRIN SR [Concomitant]

REACTIONS (2)
  - Hepatocellular injury [None]
  - Drug-induced liver injury [None]
